FAERS Safety Report 6331764-8 (Version None)
Quarter: 2009Q3

REPORT INFORMATION
  Report Type: 
  Country: None (occurrence: None)
  Receive Date: 20090826
  Receipt Date: 20090812
  Transmission Date: 20100115
  Serious: Yes (Hospitalization)
  Sender: FDA-Public Use
  Company Number: 238552K09USA

PATIENT
  Age: 71 Year
  Sex: Female
  Weight: 59 kg

DRUGS (4)
  1. REBIF [Suspect]
     Indication: MULTIPLE SCLEROSIS
     Dosage: 44 MCG, 3 IN 1 WEEKS, SUBCUTANEOUS
     Route: 058
     Dates: start: 20050201
  2. ATENOLOL [Concomitant]
  3. SYNTHROID [Concomitant]
  4. OTHER UNSPECIFIED MEDICATIONS (ALL OTHER THERAPEUTIIC PRODUCTS) [Concomitant]

REACTIONS (1)
  - LACUNAR INFARCTION [None]
